FAERS Safety Report 7205102-2 (Version None)
Quarter: 2010Q4

REPORT INFORMATION
  Report Type: 
  Country: None (occurrence: None)
  Receive Date: 20101230
  Receipt Date: 20101227
  Transmission Date: 20110411
  Serious: Yes (Death, Other)
  Sender: FDA-Public Use
  Company Number: US-AMGEN-USASP2010008365

PATIENT

DRUGS (29)
  1. NPLATE [Suspect]
     Indication: IDIOPATHIC THROMBOCYTOPENIC PURPURA
     Dosage: 90 A?G, UNK
     Route: 058
     Dates: start: 20100528, end: 20100624
  2. NPLATE [Suspect]
     Dosage: 180 A?G, UNK
     Dates: start: 20100603
  3. CORTICOSTEROIDS [Concomitant]
     Indication: IDIOPATHIC THROMBOCYTOPENIC PURPURA
  4. PREDNISONE [Concomitant]
     Indication: IDIOPATHIC THROMBOCYTOPENIC PURPURA
     Dosage: 20 UNK, UNK
     Dates: start: 20100527
  5. PREDNISONE [Concomitant]
     Dosage: 20 UNK, UNK
     Dates: start: 20100528
  6. PREDNISONE [Concomitant]
     Dosage: 20 UNK, UNK
     Dates: start: 20100601
  7. PREDNISONE [Concomitant]
     Dosage: 10 UNK, UNK
     Dates: start: 20100603
  8. PREDNISONE [Concomitant]
     Dosage: 180 A?G, UNK
     Dates: start: 20100624
  9. ALOXI [Concomitant]
     Indication: PRODUCT USED FOR UNKNOWN INDICATION
  10. DECADRON [Concomitant]
     Indication: PRODUCT USED FOR UNKNOWN INDICATION
     Dosage: 10 UNK, UNK
     Dates: start: 20100610
  11. DECADRON [Concomitant]
     Dosage: 10 UNK, UNK
     Dates: start: 20100617
  12. DECADRON [Concomitant]
     Dosage: 10 UNK, UNK
     Dates: start: 20100624
  13. NEULASTA [Concomitant]
     Indication: PRODUCT USED FOR UNKNOWN INDICATION
     Dosage: 6 MG, UNK
  14. AVASTIN [Concomitant]
     Indication: NON-SMALL CELL LUNG CANCER METASTATIC
  15. TAXOTERE [Concomitant]
     Indication: NON-SMALL CELL LUNG CANCER METASTATIC
  16. CARBOPLATIN [Concomitant]
     Indication: NON-SMALL CELL LUNG CANCER METASTATIC
  17. ZOMETA [Concomitant]
     Indication: NON-SMALL CELL LUNG CANCER METASTATIC
  18. RITUXAN [Concomitant]
     Indication: PRODUCT USED FOR UNKNOWN INDICATION
     Dosage: 750 UNK, QWK
     Dates: start: 20100610
  19. RITUXAN [Concomitant]
     Dosage: 750 UNK, QWK
     Dates: start: 20100617
  20. RITUXAN [Concomitant]
     Dosage: 750 UNK, QWK
     Dates: start: 20100624
  21. BENADRYL [Concomitant]
     Indication: PRODUCT USED FOR UNKNOWN INDICATION
     Dosage: 50 UNK, UNK
     Dates: start: 20100610
  22. BENADRYL [Concomitant]
     Dosage: 50 UNK, UNK
     Dates: start: 20100617
  23. BENADRYL [Concomitant]
     Dosage: 50 UNK, UNK
     Dates: start: 20100624
  24. TYLENOL (CAPLET) [Concomitant]
     Indication: PRODUCT USED FOR UNKNOWN INDICATION
     Dosage: 1000 UNK, UNK
     Dates: start: 20100610
  25. TYLENOL (CAPLET) [Concomitant]
     Dosage: 1000 UNK, UNK
     Dates: start: 20100617
  26. TYLENOL (CAPLET) [Concomitant]
     Dosage: 1000 UNK, UNK
     Dates: start: 20100624
  27. MEGACE ES [Concomitant]
     Indication: DECREASED APPETITE
     Dosage: UNK
     Dates: start: 20100601
  28. OXYCODONE [Concomitant]
     Indication: PAIN
     Dosage: 20 MG, Q12H
  29. TARCEVA [Concomitant]
     Indication: PRODUCT USED FOR UNKNOWN INDICATION

REACTIONS (10)
  - ASTHENIA [None]
  - COUGH [None]
  - DECREASED APPETITE [None]
  - DECUBITUS ULCER [None]
  - DRUG INEFFECTIVE [None]
  - GAIT DISTURBANCE [None]
  - INSOMNIA [None]
  - METASTATIC NEOPLASM [None]
  - NASAL DISCOMFORT [None]
  - PAIN [None]
